FAERS Safety Report 8902697 (Version 1)
Quarter: 2012Q4

REPORT INFORMATION
  Report Type: 
  Country: DK (occurrence: DK)
  Receive Date: 20121112
  Receipt Date: 20121112
  Transmission Date: 20130627
  Serious: Yes (Congenital Anomaly)
  Sender: FDA-Public Use
  Company Number: DK-009507513-1211DNK004439

PATIENT
  Sex: Female

DRUGS (2)
  1. TRILAFON [Suspect]
     Dosage: Treatment started in week 8 of the pregnancy
     Route: 064
  2. INVEGA [Suspect]
     Dosage: Ceased after positive pregnancy test in week 8
     Route: 064

REACTIONS (2)
  - Oesophageal atresia [Not Recovered/Not Resolved]
  - Foetal exposure during pregnancy [Recovered/Resolved]
